FAERS Safety Report 4570267-8 (Version None)
Quarter: 2005Q1

REPORT INFORMATION
  Report Type: 
  Country: None (occurrence: None)
  Receive Date: 20050202
  Receipt Date: 20050124
  Transmission Date: 20050727
  Serious: Yes (Life-Threatening)
  Sender: FDA-Public Use
  Company Number: 2005019020

PATIENT
  Age: 45 Year
  Sex: Female

DRUGS (1)
  1. SULPERAZON (SULBACTAM, CEFOPERAZONE) [Suspect]
     Indication: LUNG INFECTION
     Dosage: (2 GRAM) INTRAVENOUS
     Route: 042
     Dates: end: 20050117

REACTIONS (8)
  - ANAPHYLACTIC SHOCK [None]
  - CHEST PAIN [None]
  - CONFUSIONAL STATE [None]
  - HEART RATE DECREASED [None]
  - HEART RATE INCREASED [None]
  - INFUSION RELATED REACTION [None]
  - PALLOR [None]
  - PHARYNX DISCOMFORT [None]
